FAERS Safety Report 16399257 (Version 1)
Quarter: 2019Q2

REPORT INFORMATION
  Report Type: Report from Study
  Country: US (occurrence: US)
  Receive Date: 20190606
  Receipt Date: 20190606
  Transmission Date: 20190711
  Serious: No
  Sender: FDA-Public Use
  Company Number: US-ALEXION PHARMACEUTICALS INC.-A201908332

PATIENT
  Sex: Male

DRUGS (1)
  1. SOLIRIS [Suspect]
     Active Substance: ECULIZUMAB
     Indication: PAROXYSMAL NOCTURNAL HAEMOGLOBINURIA
     Dosage: UNK
     Route: 065
     Dates: end: 20190503

REACTIONS (9)
  - Hepatic enzyme increased [Unknown]
  - Full blood count decreased [Unknown]
  - Jaundice [Unknown]
  - Fatigue [Unknown]
  - Dysphagia [Unknown]
  - Dizziness [Unknown]
  - Dyspnoea [Unknown]
  - Blood urine present [Unknown]
  - Arthralgia [Unknown]
